FAERS Safety Report 19152266 (Version 1)
Quarter: 2021Q2

REPORT INFORMATION
  Report Type: Spontaneous
  Country: US (occurrence: US)
  Receive Date: 20210416
  Receipt Date: 20210416
  Transmission Date: 20210717
  Serious: Yes (Life-Threatening)
  Sender: FDA-Public Use
  Company Number: None

PATIENT
  Age: 32 Year
  Sex: Female
  Weight: 60.78 kg

DRUGS (2)
  1. GABAPENTIN 600 MG UNKNOWN [Suspect]
     Active Substance: GABAPENTIN
     Indication: ANXIETY
  2. GABAPENTIN 600 MG [Suspect]
     Active Substance: GABAPENTIN
     Indication: BIPOLAR DISORDER
     Route: 048
     Dates: start: 2006

REACTIONS (1)
  - Anaphylactic reaction [None]

NARRATIVE: CASE EVENT DATE: 2006
